FAERS Safety Report 17885066 (Version 3)
Quarter: 2020Q3

REPORT INFORMATION
  Report Type: Spontaneous
  Country: US (occurrence: US)
  Receive Date: 20200611
  Receipt Date: 20200824
  Transmission Date: 20201103
  Serious: Yes (Hospitalization, Other)
  Sender: FDA-Public Use
  Company Number: US-SA-2020SA143774

PATIENT

DRUGS (1)
  1. DUPIXENT [Suspect]
     Active Substance: DUPILUMAB
     Dosage: 300 MG, OTHER
     Route: 058
     Dates: start: 20200522

REACTIONS (4)
  - Product dose omission issue [Unknown]
  - Scratch [Unknown]
  - Scar [Unknown]
  - Bipolar disorder [Unknown]

NARRATIVE: CASE EVENT DATE: 20200601
